FAERS Safety Report 4274229-X (Version None)
Quarter: 2004Q1

REPORT INFORMATION
  Report Type: 
  Country: None (occurrence: None)
  Receive Date: 20040115
  Receipt Date: 20040107
  Transmission Date: 20041129
  Serious: Yes (Death, Other)
  Sender: FDA-Public Use
  Company Number: 2004001347

PATIENT
  Age: 60 Year
  Sex: Female

DRUGS (1)
  1. TIKOSYN [Suspect]
     Indication: ILL-DEFINED DISORDER
     Dosage: 1000 MCG (BID), ORAL
     Route: 048
     Dates: start: 20030101, end: 20030101

REACTIONS (1)
  - DEATH [None]
